FAERS Safety Report 8911832 (Version 3)
Quarter: 2013Q2

REPORT INFORMATION
  Report Type: Spontaneous
  Country: US (occurrence: US)
  Receive Date: 20121116
  Receipt Date: 20130620
  Transmission Date: 20140414
  Serious: Yes (Disabling, Other)
  Sender: FDA-Public Use
  Company Number: US-JNJFOC-20121103837

PATIENT
  Age: 69 Year
  Sex: Male
  Weight: 90.72 kg

DRUGS (13)
  1. REMICADE [Suspect]
     Indication: PSORIATIC ARTHROPATHY
     Route: 042
     Dates: start: 201209
  2. REMICADE [Suspect]
     Indication: PSORIATIC ARTHROPATHY
     Dosage: START DATE: PRIOR TO FEB-2012
     Route: 042
     Dates: start: 20111101, end: 20120210
  3. REMICADE [Suspect]
     Indication: PSORIATIC ARTHROPATHY
     Route: 042
     Dates: start: 20121002, end: 20121002
  4. REMICADE [Suspect]
     Indication: PSORIASIS
     Route: 042
     Dates: start: 20121002, end: 20121002
  5. REMICADE [Suspect]
     Indication: PSORIASIS
     Dosage: START DATE: PRIOR TO FEB-2012
     Route: 042
     Dates: start: 20111101, end: 20120210
  6. REMICADE [Suspect]
     Indication: PSORIASIS
     Route: 042
     Dates: start: 201209
  7. METHOTREXATE [Suspect]
     Indication: POLYARTHRITIS
     Route: 065
  8. METHOTREXATE [Suspect]
     Indication: PSORIATIC ARTHROPATHY
     Route: 065
  9. METHOTREXATE [Suspect]
     Indication: PSORIASIS
     Route: 065
  10. CLOBETASOL [Concomitant]
     Indication: PSORIASIS
     Dosage: 0,05%
     Route: 065
  11. FOLIC ACID [Concomitant]
     Indication: PSORIATIC ARTHROPATHY
     Route: 065
  12. FOLIC ACID [Concomitant]
     Indication: PSORIASIS
     Route: 065
  13. FOLIC ACID [Concomitant]
     Indication: POLYARTHRITIS
     Route: 065

REACTIONS (12)
  - Psoriasis [Unknown]
  - Arthralgia [Unknown]
  - Skin burning sensation [Unknown]
  - Infusion related reaction [Unknown]
  - Nausea [Unknown]
  - Weight decreased [Unknown]
  - Vomiting [Unknown]
  - Pruritus [Unknown]
  - Asthenia [Unknown]
  - Pain [Unknown]
  - Fatigue [Unknown]
  - Wrong drug administered [Recovered/Resolved]
